FAERS Safety Report 7791813-7 (Version None)
Quarter: 2011Q4

REPORT INFORMATION
  Report Type: 
  Country: None (occurrence: None)
  Receive Date: 20111003
  Receipt Date: 20110927
  Transmission Date: 20120403
  Serious: Yes (Death, Other)
  Sender: FDA-Public Use
  Company Number: US-PFIZER INC-2009160168

PATIENT
  Sex: Male
  Weight: 81 kg

DRUGS (15)
  1. PLAVIX [Concomitant]
     Dosage: 75 MG, 1X/DAY
     Dates: start: 20061009
  2. VITAMIN TAB [Concomitant]
     Dosage: UNK
     Dates: start: 20030722
  3. VYTORIN [Concomitant]
     Dosage: 10/20 ONE AT BEDTIME
     Dates: start: 20060620
  4. CYMBALTA [Concomitant]
     Dosage: 60 MG, 1X/DAY
     Dates: start: 20061009
  5. COUMADIN [Concomitant]
     Dosage: 5 MG, ALTERNATE DAY
     Dates: start: 20060620
  6. COUMADIN [Concomitant]
     Dosage: 2.5 MG, ALTERNATE DAY
  7. CHANTIX [Suspect]
     Indication: SMOKING CESSATION THERAPY
     Dosage: 1 MG, 2X/DAY
     Dates: start: 20070315
  8. CHANTIX [Suspect]
     Dosage: 0.5MG/1MG
     Route: 048
     Dates: start: 20070301, end: 20070501
  9. CHANTIX [Suspect]
     Dosage: 0.5MG/1MG
     Dates: start: 20070801, end: 20070901
  10. FIORINAL [Concomitant]
     Dosage: ONE EVERY 4 HOURS
     Dates: start: 20070807
  11. COREG [Concomitant]
     Dosage: 12.5 MG, 2X/DAY
     Dates: start: 20061009
  12. VIAGRA [Concomitant]
     Dosage: 100 MG, AS NEEDED ONE HOUR BEFORE INTERCOURSE
     Dates: start: 20061208
  13. LORAZEPAM [Concomitant]
     Dosage: 2 MG, 2X/DAY
     Dates: start: 20070226
  14. LOVAZA [Concomitant]
     Dosage: UNK
     Dates: start: 20030722
  15. LOTENSIN [Concomitant]
     Dosage: 10 MG, 1X/DAY
     Dates: start: 20061009

REACTIONS (5)
  - ANXIETY [None]
  - COMPLETED SUICIDE [None]
  - IRRITABILITY [None]
  - INSOMNIA [None]
  - DEPRESSION [None]
